FAERS Safety Report 4931337-5 (Version None)
Quarter: 2006Q1

REPORT INFORMATION
  Report Type: 
  Country: None (occurrence: None)
  Receive Date: 20060228
  Receipt Date: 20060214
  Transmission Date: 20060701
  Serious: Yes (Other)
  Sender: FDA-Public Use
  Company Number: US016857

PATIENT
  Age: 10 Year
  Sex: Male
  Weight: 43.0917 kg

DRUGS (3)
  1. GABITRIL [Suspect]
     Indication: BIPOLAR DISORDER
     Dosage: 4 MG QD ORAL
     Route: 048
     Dates: start: 20040101, end: 20040301
  2. LAMICTAL [Suspect]
     Indication: BIPOLAR DISORDER
     Dosage: 200 MG QD ORAL
     Route: 048
  3. SEROQUEL [Suspect]
     Indication: BIPOLAR DISORDER
     Dosage: 50 MG QD ORAL
     Route: 048

REACTIONS (1)
  - COLOUR BLINDNESS [None]
